FAERS Safety Report 9541945 (Version 1)
Quarter: 2013Q3

REPORT INFORMATION
  Report Type: Spontaneous
  Country: SE (occurrence: SE)
  Receive Date: 20130923
  Receipt Date: 20130923
  Transmission Date: 20140515
  Serious: Yes (Other)
  Sender: FDA-Public Use
  Company Number: PHHY2013SE104621

PATIENT
  Sex: Male

DRUGS (1)
  1. GILENYA [Suspect]
     Route: 048
     Dates: start: 20130524

REACTIONS (3)
  - Retinal oedema [Unknown]
  - Eye pruritus [Unknown]
  - Eye irritation [Unknown]
